FAERS Safety Report 16724425 (Version 1)
Quarter: 2019Q3

REPORT INFORMATION
  Report Type: Spontaneous
  Country: US (occurrence: US)
  Receive Date: 20190821
  Receipt Date: 20190821
  Transmission Date: 20191005
  Serious: No
  Sender: FDA-Public Use
  Company Number: US-ASTRAZENECA-2019SF02586

PATIENT
  Age: 25246 Day
  Sex: Female
  Weight: 45.4 kg

DRUGS (2)
  1. SYMBICORT [Suspect]
     Active Substance: BUDESONIDE\FORMOTEROL FUMARATE DIHYDRATE
     Indication: ASTHMA
     Dosage: 160/4.5 MCG FOR, TWO TIMES A DAY
     Route: 055
     Dates: start: 20190613, end: 20190711
  2. ALBUTEROL. [Concomitant]
     Active Substance: ALBUTEROL
     Indication: ASTHMA EXERCISE INDUCED
     Dosage: AS REQUIRED
     Route: 055
     Dates: start: 201810

REACTIONS (2)
  - Dysphonia [Not Recovered/Not Resolved]
  - Vocal cord disorder [Unknown]

NARRATIVE: CASE EVENT DATE: 20190615
